FAERS Safety Report 10553785 (Version 1)
Quarter: 2014Q4

REPORT INFORMATION
  Report Type: Spontaneous
  Country: US (occurrence: None)
  Receive Date: 20141029
  Receipt Date: 20141029
  Transmission Date: 20150529
  Serious: Yes (Hospitalization)
  Sender: FDA-Public Use
  Company Number: None

PATIENT
  Age: 44 Year
  Sex: Female
  Weight: 54.5 kg

DRUGS (9)
  1. LASIX [Concomitant]
     Active Substance: FUROSEMIDE
  2. MEGACE [Concomitant]
     Active Substance: MEGESTROL ACETATE
  3. POTASSIUM [Concomitant]
     Active Substance: POTASSIUM
  4. METHADONE [Concomitant]
     Active Substance: METHADONE HYDROCHLORIDE
  5. DRONABINOL. [Concomitant]
     Active Substance: DRONABINOL
  6. EXJADE [Suspect]
     Active Substance: DEFERASIROX
     Indication: ANAEMIA
     Route: 048
     Dates: start: 20131119
  7. VITAMIN K [Concomitant]
     Active Substance: PHYTONADIONE
  8. MEROPENEM. [Concomitant]
     Active Substance: MEROPENEM
  9. EXJADE [Suspect]
     Active Substance: DEFERASIROX
     Route: 048
     Dates: start: 20131119

REACTIONS (1)
  - Muscle disorder [None]

NARRATIVE: CASE EVENT DATE: 20141006
